FAERS Safety Report 17146501 (Version 2)
Quarter: 2024Q1

REPORT INFORMATION
  Report Type: Spontaneous
  Country: CH (occurrence: CH)
  Receive Date: 20191212
  Receipt Date: 20240105
  Transmission Date: 20240409
  Serious: Yes (Hospitalization, Other)
  Sender: FDA-Public Use
  Company Number: CH-NOVARTISPH-NVSC2019CH065684

PATIENT
  Age: 38 Year
  Sex: Female

DRUGS (7)
  1. TAFINLAR [Suspect]
     Active Substance: DABRAFENIB MESYLATE
     Indication: Metastatic malignant melanoma
     Dosage: 300 MG, QD
     Route: 048
     Dates: start: 20181030, end: 20181203
  2. MEKINIST [Suspect]
     Active Substance: TRAMETINIB DIMETHYL SULFOXIDE
     Indication: Metastatic malignant melanoma
     Dosage: 2 MG, QD
     Route: 048
     Dates: start: 20181030, end: 20181203
  3. OPDIVO [Suspect]
     Active Substance: NIVOLUMAB
     Indication: Metastatic malignant melanoma
     Dosage: 65 MG, QD
     Route: 042
     Dates: start: 20180621, end: 20180621
  4. OPDIVO [Suspect]
     Active Substance: NIVOLUMAB
     Dosage: 67 MG, QD
     Route: 042
     Dates: start: 20180820, end: 20180820
  5. OPDIVO [Suspect]
     Active Substance: NIVOLUMAB
     Dosage: 65 MG, QD
     Route: 042
     Dates: start: 20180910, end: 20180910
  6. DAFALGAN [Concomitant]
     Active Substance: ACETAMINOPHEN
     Indication: Product used for unknown indication
     Dosage: 1 DOSAGE FORM, PRN
     Route: 048
  7. ZOFRAN [Concomitant]
     Active Substance: ONDANSETRON HYDROCHLORIDE
     Indication: Product used for unknown indication
     Dosage: 1 DOSAGE FORM, PRN
     Route: 048

REACTIONS (6)
  - Vogt-Koyanagi-Harada disease [Not Recovered/Not Resolved]
  - Uveitis [Not Recovered/Not Resolved]
  - Deafness [Not Recovered/Not Resolved]
  - Meningitis aseptic [Not Recovered/Not Resolved]
  - Metastatic malignant melanoma [Unknown]
  - Malignant neoplasm progression [Unknown]

NARRATIVE: CASE EVENT DATE: 20181128
